FAERS Safety Report 19464693 (Version 2)
Quarter: 2021Q2

REPORT INFORMATION
  Report Type: Spontaneous
  Country: CN (occurrence: CN)
  Receive Date: 20210626
  Receipt Date: 20210626
  Transmission Date: 20210717
  Serious: Yes (Hospitalization)
  Sender: FDA-Public Use
  Company Number: NVSC2021CN141874

PATIENT
  Age: 47 Year
  Sex: Male

DRUGS (2)
  1. SACUBITRIL,VALSARTAN [Suspect]
     Active Substance: SACUBITRIL\VALSARTAN
     Indication: CARDIAC FAILURE
     Dosage: 12.500 MG, BID
     Route: 048
     Dates: start: 20210519, end: 20210613
  2. SPIRONOLACTON [Concomitant]
     Active Substance: SPIRONOLACTONE
     Indication: CARDIAC FAILURE
     Dosage: 20.000 MG, QD
     Route: 048
     Dates: start: 20210517, end: 20210613

REACTIONS (1)
  - Blood potassium increased [Recovering/Resolving]

NARRATIVE: CASE EVENT DATE: 20210614
